FAERS Safety Report 5453947-1 (Version None)
Quarter: 2007Q3

REPORT INFORMATION
  Report Type: 
  Country: None (occurrence: None)
  Receive Date: 20070917
  Receipt Date: 20070709
  Transmission Date: 20080115
  Serious: Yes (Hospitalization)
  Sender: FDA-Public Use
  Company Number: US-ASTRAZENECA-2006UW00027

PATIENT
  Age: 5188 Day
  Sex: Female
  Weight: 63.6 kg

DRUGS (3)
  1. SEROQUEL [Suspect]
     Indication: SCHIZOPHRENIA
     Route: 048
     Dates: start: 20020301, end: 20021001
  2. ZYPREXA [Suspect]
     Route: 048
  3. ZYPREXA [Concomitant]
     Dosage: 2.5 - 5.0 MG
     Dates: start: 20011001, end: 20020901

REACTIONS (1)
  - DIABETES MELLITUS [None]
